FAERS Safety Report 19021148 (Version 2)
Quarter: 2021Q3

REPORT INFORMATION
  Report Type: Report from Study
  Country: FR (occurrence: FR)
  Receive Date: 20210317
  Receipt Date: 20210716
  Transmission Date: 20211014
  Serious: Yes (Hospitalization)
  Sender: FDA-Public Use
  Company Number: FR-TAKEDA-FR201920982

PATIENT
  Age: 55 Year
  Sex: Female
  Weight: 49 kg

DRUGS (10)
  1. FERINJECT [Concomitant]
     Active Substance: FERRIC CARBOXYMALTOSE
     Indication: ANAEMIA
     Dosage: 1 GRAM, ONE DOSE
     Route: 042
     Dates: start: 20201207, end: 20201207
  2. TEDUGLUTIDE [Suspect]
     Active Substance: TEDUGLUTIDE
     Indication: SHORT-BOWEL SYNDROME
     Dosage: 2.35 MILLIGRAM, 0.05 MG/KG, 7 DOSES PER WEEK
     Route: 065
     Dates: start: 20160111, end: 20160720
  3. TEDUGLUTIDE [Suspect]
     Active Substance: TEDUGLUTIDE
     Indication: SHORT-BOWEL SYNDROME
     Dosage: 2.35 MILLIGRAM, 0.05 MG/KG, 7 DOSES PER WEEK
     Route: 065
     Dates: start: 20160111, end: 20160720
  4. TEDUGLUTIDE [Suspect]
     Active Substance: TEDUGLUTIDE
     Indication: SHORT-BOWEL SYNDROME
     Dosage: 2.35 MILLIGRAM, 0.05 MG/KG, 7 DOSES PER WEEK
     Route: 065
     Dates: start: 20160111, end: 20160720
  5. FERINJECT [Concomitant]
     Active Substance: FERRIC CARBOXYMALTOSE
     Dosage: 500.00 MILLIGRAM, ONE DOSE
     Route: 042
     Dates: start: 20200918, end: 20200918
  6. VITAMIN D3 [Concomitant]
     Active Substance: CHOLECALCIFEROL
     Indication: SUPPLEMENTATION THERAPY
  7. FERINJECT [Concomitant]
     Active Substance: FERRIC CARBOXYMALTOSE
     Dosage: 1 GRAM, ONE DOSE
     Route: 042
     Dates: start: 20200908, end: 20200908
  8. DEBRIDAT [Concomitant]
     Active Substance: TRIMEBUTINE MALEATE
     Indication: ABDOMINAL DISTENSION
     Dosage: 1 DOSAGE FORM, TID
     Route: 048
     Dates: start: 20200608
  9. TEDUGLUTIDE [Suspect]
     Active Substance: TEDUGLUTIDE
     Indication: SHORT-BOWEL SYNDROME
     Dosage: 2.35 MILLIGRAM, 0.05 MG/KG, 7 DOSES PER WEEK
     Route: 065
     Dates: start: 20160111, end: 20160720
  10. VITAMIN B12 + FOLIC ACID [Concomitant]
     Active Substance: CYANOCOBALAMIN\FOLIC ACID
     Indication: SUPPLEMENTATION THERAPY

REACTIONS (1)
  - Anaemia [Not Recovered/Not Resolved]

NARRATIVE: CASE EVENT DATE: 20190211
